FAERS Safety Report 4985636-1 (Version None)
Quarter: 2006Q2

REPORT INFORMATION
  Report Type: 
  Country: None (occurrence: None)
  Receive Date: 20060428
  Receipt Date: 20060419
  Transmission Date: 20061013
  Serious: Yes (Death, Other)
  Sender: FDA-Public Use
  Company Number: PHEH2006US05196

PATIENT
  Age: 71 Year
  Sex: Male

DRUGS (1)
  1. AREDIA [Suspect]
     Dosage: 90 MG, UNK

REACTIONS (2)
  - DEATH [None]
  - OSTEONECROSIS [None]
